FAERS Safety Report 16782776 (Version 1)
Quarter: 2019Q3

REPORT INFORMATION
  Report Type: Spontaneous
  Country: US (occurrence: US)
  Receive Date: 20190906
  Receipt Date: 20190906
  Transmission Date: 20191005
  Serious: Yes (Other)
  Sender: FDA-Public Use
  Company Number: US-ELI_LILLY_AND_COMPANY-US201909001964

PATIENT
  Sex: Female

DRUGS (1)
  1. EMGALITY [Suspect]
     Active Substance: GALCANEZUMAB-GNLM
     Indication: MIGRAINE
     Dosage: UNK UNK, UNKNOWN
     Route: 065
     Dates: start: 20190704

REACTIONS (8)
  - Paresis [Recovered/Resolved]
  - Heart rate increased [Recovering/Resolving]
  - Hypertension [Recovering/Resolving]
  - Loss of personal independence in daily activities [Unknown]
  - Aphasia [Recovered/Resolved]
  - Disturbance in attention [Recovering/Resolving]
  - Presyncope [Recovering/Resolving]
  - Fatigue [Recovering/Resolving]
